FAERS Safety Report 15694025 (Version 1)
Quarter: 2018Q4

REPORT INFORMATION
  Report Type: Spontaneous
  Country: IT (occurrence: IT)
  Receive Date: 20181206
  Receipt Date: 20181206
  Transmission Date: 20190205
  Serious: Yes (Life-Threatening)
  Sender: FDA-Public Use
  Company Number: IT-SA-2018SA329621

PATIENT
  Age: 90 Year
  Sex: Female
  Weight: 55 kg

DRUGS (2)
  1. EPARMEFOLIN [CALCIUM FOLINATE;CYANOCOBALAMIN] [Concomitant]
     Dosage: 2.9 MG
     Route: 042
     Dates: start: 20181108, end: 20181112
  2. FERLIXIT [Suspect]
     Active Substance: SODIUM FERRIC GLUCONATE COMPLEX
     Indication: HAEMORRHAGIC ANAEMIA
     Dosage: 125 MG, QD
     Route: 042
     Dates: start: 20181108, end: 20181109

REACTIONS (4)
  - Diarrhoea [Recovered/Resolved]
  - Urticaria [Recovered/Resolved]
  - Pain [Recovered/Resolved]
  - Syncope [Recovered/Resolved]

NARRATIVE: CASE EVENT DATE: 20181109
